FAERS Safety Report 6113530-1 (Version None)
Quarter: 2009Q1

REPORT INFORMATION
  Report Type: 
  Country: None (occurrence: None)
  Receive Date: 20090312
  Receipt Date: 20090309
  Transmission Date: 20090719
  Serious: Yes (Hospitalization)
  Sender: FDA-Public Use
  Company Number: EE-ASTRAZENECA-2009SE01071

PATIENT
  Age: 33 Year
  Sex: Male

DRUGS (3)
  1. SEROQUEL [Suspect]
     Indication: SCHIZOPHRENIA
     Route: 048
     Dates: start: 20090123, end: 20090101
  2. SEROQUEL [Suspect]
     Route: 048
     Dates: start: 20090101, end: 20090128
  3. CIPRALEX [Concomitant]
     Dates: start: 20090123

REACTIONS (1)
  - ILEUS [None]
